FAERS Safety Report 26157396 (Version 1)
Quarter: 2025Q4

REPORT INFORMATION
  Report Type: Spontaneous
  Country: US (occurrence: US)
  Receive Date: 20251215
  Receipt Date: 20251215
  Transmission Date: 20260118
  Serious: Yes (Death, Other)
  Sender: AMGEN
  Company Number: US-AMGEN-USASP2025243578

PATIENT
  Age: 65 Year
  Sex: Male

DRUGS (2)
  1. BEVACIZUMAB [Suspect]
     Active Substance: BEVACIZUMAB
     Indication: Astrocytoma malignant
     Dosage: UNK
     Route: 065
  2. VORASIDENIB [Concomitant]
     Active Substance: VORASIDENIB
     Indication: Astrocytoma malignant

REACTIONS (4)
  - Death [Fatal]
  - Astrocytoma malignant [Not Recovered/Not Resolved]
  - Supraventricular tachycardia [Unknown]
  - Off label use [Unknown]
